FAERS Safety Report 5922955-6 (Version None)
Quarter: 2008Q4

REPORT INFORMATION
  Report Type: 
  Country: None (occurrence: None)
  Receive Date: 20081018
  Receipt Date: 20081007
  Transmission Date: 20090506
  Serious: Yes (Death, Life-Threatening, Hospitalization)
  Sender: FDA-Public Use
  Company Number: DE-PFIZER INC-2004059948

PATIENT
  Sex: Male
  Weight: 65 kg

DRUGS (4)
  1. SU-014,813 [Suspect]
     Indication: NEOPLASM
     Route: 048
     Dates: start: 20040811, end: 20040829
  2. SU-014,813 [Suspect]
  3. ASPIRIN [Suspect]
     Route: 048
     Dates: start: 19970101
  4. METOPROLOL TARTRATE [Concomitant]
     Route: 048
     Dates: start: 19970101

REACTIONS (1)
  - CEREBRAL HAEMORRHAGE [None]
